FAERS Safety Report 18036014 (Version 3)
Quarter: 2020Q3

REPORT INFORMATION
  Report Type: Spontaneous
  Country: HU (occurrence: HU)
  Receive Date: 20200717
  Receipt Date: 20200817
  Transmission Date: 20201103
  Serious: Yes (Other)
  Sender: FDA-Public Use
  Company Number: HU-ROCHE-2639104

PATIENT

DRUGS (4)
  1. ESCITIL [Concomitant]
  2. RIVOTRIL [Suspect]
     Active Substance: CLONAZEPAM
     Route: 048
     Dates: start: 2005
  3. RIVOTRIL [Suspect]
     Active Substance: CLONAZEPAM
     Indication: PRODUCT USED FOR UNKNOWN INDICATION
     Dosage: 1 PILL 0.5 MG DAILY AT BEDTIME
     Route: 048
     Dates: start: 2005
  4. SPITOMIN [Concomitant]

REACTIONS (19)
  - Feeling abnormal [Unknown]
  - Panic disorder [Unknown]
  - Vision blurred [Unknown]
  - Tension [Unknown]
  - Tremor [Unknown]
  - Withdrawal syndrome [Unknown]
  - Altered state of consciousness [Unknown]
  - Dizziness [Unknown]
  - Drug ineffective [Unknown]
  - Speech disorder [Unknown]
  - Muscle spasms [Unknown]
  - Hypoaesthesia [Unknown]
  - Yawning [Unknown]
  - Somnolence [Not Recovered/Not Resolved]
  - Mental disorder [Unknown]
  - Malaise [Unknown]
  - Feeling hot [Unknown]
  - Disturbance in attention [Unknown]
  - Neuralgia [Unknown]

NARRATIVE: CASE EVENT DATE: 2020
